FAERS Safety Report 9912174 (Version 3)
Quarter: 2014Q1

REPORT INFORMATION
  Report Type: Spontaneous
  Country: GB (occurrence: GB)
  Receive Date: 20140220
  Receipt Date: 20140322
  Transmission Date: 20141002
  Serious: Yes (Other)
  Sender: FDA-Public Use
  Company Number: GB-ROCHE-1328475

PATIENT
  Age: 66 Year
  Sex: Female

DRUGS (11)
  1. BONVIVA [Suspect]
     Indication: PRODUCT USED FOR UNKNOWN INDICATION
     Route: 048
  2. ALENDRONIC ACID [Concomitant]
     Route: 065
  3. AMITRIPTYLINE [Concomitant]
     Route: 065
     Dates: start: 20090908
  4. PARACETAMOL [Concomitant]
     Route: 065
     Dates: start: 20090908
  5. BENDROFLUMETHIAZIDE [Concomitant]
     Route: 065
     Dates: start: 20090908
  6. PERINDOPRIL [Concomitant]
     Route: 065
  7. BUPRENORPHINE [Concomitant]
     Indication: PAIN
     Route: 061
     Dates: start: 20090908
  8. CALCICHEW D3 [Concomitant]
     Indication: OSTEOPOROSIS
     Route: 048
     Dates: start: 20090908
  9. LEVOTHYROXIN [Concomitant]
     Route: 048
  10. AMLODIPIN [Concomitant]
     Indication: HYPERTENSION
     Route: 048
     Dates: start: 20090908
  11. SIMVASTATINE [Concomitant]
     Indication: BLOOD CHOLESTEROL
     Route: 048

REACTIONS (8)
  - Postmenopausal haemorrhage [Recovered/Resolved]
  - Malaise [Unknown]
  - Influenza like illness [Unknown]
  - Chest pain [Unknown]
  - Odynophagia [Unknown]
  - Nausea [Unknown]
  - Vomiting [Unknown]
  - Dysphagia [Unknown]
